FAERS Safety Report 4357281-2 (Version None)
Quarter: 2004Q2

REPORT INFORMATION
  Report Type: 
  Country: None (occurrence: None)
  Receive Date: 20040513
  Receipt Date: 20040430
  Transmission Date: 20050107
  Serious: Yes (Other)
  Sender: FDA-Public Use
  Company Number: PHEH2004US04844

PATIENT

DRUGS (6)
  1. MIACALCIN [Suspect]
     Indication: OSTEOPOROSIS
     Dates: start: 20031201
  2. FOSAMAX [Concomitant]
  3. TUMS [Concomitant]
  4. CITRACAL [Concomitant]
  5. VITAMIN D [Concomitant]
  6. ENSURE [Concomitant]

REACTIONS (5)
  - FALL [None]
  - FRACTURED SACRUM [None]
  - MULTIPLE FRACTURES [None]
  - OSTEOPOROSIS [None]
  - PELVIC FRACTURE [None]
